FAERS Safety Report 6604691-6 (Version None)
Quarter: 2010Q1

REPORT INFORMATION
  Report Type: 
  Country: None (occurrence: None)
  Receive Date: 20100226
  Receipt Date: 20100219
  Transmission Date: 20100710
  Serious: Yes (Hospitalization)
  Sender: FDA-Public Use
  Company Number: SE-ROCHE-686227

PATIENT
  Age: 38 Year
  Sex: Male

DRUGS (6)
  1. PEGASYS [Suspect]
     Indication: HEPATITIS C
     Dosage: DOSE REPORTED AS: 180 RGW
     Route: 065
     Dates: start: 20080814, end: 20090717
  2. COPEGUS [Suspect]
     Indication: HEPATITIS C
     Dosage: DOSE REPORTED AS 1.2GMD, REPORTED AS COPEGUS FC
     Route: 065
     Dates: start: 20080814, end: 20090717
  3. ATARAX [Concomitant]
  4. STILNOCT [Concomitant]
  5. ACETAMINOPHEN [Concomitant]
  6. CANODERM [Concomitant]

REACTIONS (1)
  - MALE REPRODUCTIVE TRACT NEOPLASM [None]
